FAERS Safety Report 7285792-9 (Version None)
Quarter: 2011Q1

REPORT INFORMATION
  Report Type: 
  Country: None (occurrence: None)
  Receive Date: 20110125
  Receipt Date: 20110118
  Transmission Date: 20110831
  Serious: Yes (Hospitalization, Other)
  Sender: FDA-Public Use
  Company Number: 2010SP038554

PATIENT
  Age: 31 Year
  Sex: Female
  Weight: 61.2356 kg

DRUGS (2)
  1. NUVARING [Suspect]
     Indication: CONTRACEPTION
     Dates: start: 20070401, end: 20080901
  2. CHANTIX [Suspect]
     Indication: SMOKING CESSATION THERAPY

REACTIONS (21)
  - BRONCHIAL HYPERREACTIVITY [None]
  - DRUG INTOLERANCE [None]
  - PREGNANCY WITH CONTRACEPTIVE DEVICE [None]
  - BRONCHITIS [None]
  - MENORRHAGIA [None]
  - VAGINITIS BACTERIAL [None]
  - RAYNAUD'S PHENOMENON [None]
  - DEVICE DISLOCATION [None]
  - TREATMENT NONCOMPLIANCE [None]
  - NAUSEA [None]
  - GESTATIONAL HYPERTENSION [None]
  - ALOPECIA [None]
  - DEPRESSION [None]
  - ANXIETY [None]
  - HERPES SIMPLEX [None]
  - PNEUMONITIS [None]
  - SKIN INFECTION [None]
  - URINARY TRACT INFECTION [None]
  - PULMONARY EMBOLISM [None]
  - CAESAREAN SECTION [None]
  - DRUG EXPOSURE DURING PREGNANCY [None]
